FAERS Safety Report 13824591 (Version 1)
Quarter: 2017Q3

REPORT INFORMATION
  Report Type: Report from Study
  Country: None (occurrence: US)
  Receive Date: 20170802
  Receipt Date: 20170802
  Transmission Date: 20171127
  Serious: Yes (Hospitalization)
  Sender: FDA-Public Use
  Company Number: US-ABBVIE-17K-163-1968534-00

PATIENT
  Sex: Male
  Weight: 59.02 kg

DRUGS (3)
  1. OPIUM TINCTURE [Concomitant]
     Active Substance: MORPHINE
     Indication: DYSPEPSIA
  2. HUMIRA [Suspect]
     Active Substance: ADALIMUMAB
     Indication: CROHN^S DISEASE
     Route: 058
     Dates: start: 201607, end: 2017
  3. VITAMIN B12 [Concomitant]
     Active Substance: CYANOCOBALAMIN
     Indication: PRODUCT USED FOR UNKNOWN INDICATION

REACTIONS (7)
  - Gastrointestinal fistula [Recovered/Resolved]
  - Abdominal abscess [Recovered/Resolved]
  - Paraesthesia [Recovering/Resolving]
  - Bacterial infection [Recovering/Resolving]
  - Hypoaesthesia [Recovering/Resolving]
  - Candida infection [Recovering/Resolving]
  - Fungal infection [Recovering/Resolving]

NARRATIVE: CASE EVENT DATE: 2016
